FAERS Safety Report 13104193 (Version 1)
Quarter: 2017Q1

REPORT INFORMATION
  Report Type: Report from Study
  Country: TR (occurrence: TR)
  Receive Date: 20170111
  Receipt Date: 20170111
  Transmission Date: 20170428
  Serious: Yes (Death)
  Sender: FDA-Public Use
  Company Number: TR-ROCHE-1876670

PATIENT
  Age: 43 Year
  Sex: Male

DRUGS (7)
  1. HEPARIN [Concomitant]
     Active Substance: HEPARIN SODIUM
     Indication: ARTIFICIAL HEART IMPLANT
  2. ALTEPLASE [Suspect]
     Active Substance: ALTEPLASE
     Route: 041
  3. ALTEPLASE [Suspect]
     Active Substance: ALTEPLASE
     Route: 041
  4. ACETYLSALICYLIC ACID [Concomitant]
     Active Substance: ASPIRIN
     Route: 065
  5. WARFARIN [Concomitant]
     Active Substance: WARFARIN
  6. ALTEPLASE [Suspect]
     Active Substance: ALTEPLASE
     Indication: ARTIFICIAL HEART IMPLANT
     Route: 040
  7. DIPYRIDAMOLE. [Concomitant]
     Active Substance: DIPYRIDAMOLE
     Route: 065

REACTIONS (1)
  - Haemorrhage intracranial [Fatal]
